FAERS Safety Report 6681765-5 (Version None)
Quarter: 2010Q2

REPORT INFORMATION
  Report Type: 
  Country: None (occurrence: None)
  Receive Date: 20100414
  Receipt Date: 20100330
  Transmission Date: 20101027
  Serious: Yes (Hospitalization)
  Sender: FDA-Public Use
  Company Number: IE-GENENTECH-300294

PATIENT
  Sex: Female

DRUGS (2)
  1. XOLAIR [Suspect]
     Indication: DRUG USE FOR UNKNOWN INDICATION
     Dosage: 225 MG, Q2W
  2. XOLAIR [Suspect]
     Dosage: 225 MG, Q2W
     Dates: start: 20100331

REACTIONS (2)
  - DYSPNOEA [None]
  - SPINAL COMPRESSION FRACTURE [None]
